FAERS Safety Report 16941114 (Version 1)
Quarter: 2019Q4

REPORT INFORMATION
  Report Type: Spontaneous
  Country: US (occurrence: US)
  Receive Date: 20191019
  Receipt Date: 20191019
  Transmission Date: 20200122
  Serious: Yes (Life-Threatening, Hospitalization, Other)
  Sender: FDA-Public Use
  Company Number: None

PATIENT
  Age: 51 Year
  Sex: Female
  Weight: 71.1 kg

DRUGS (12)
  1. LATUDA [Suspect]
     Active Substance: LURASIDONE HYDROCHLORIDE
     Indication: SCHIZOPHRENIA
  2. METOPROLOL. [Concomitant]
     Active Substance: METOPROLOL
  3. CLONAZEPAM. [Concomitant]
     Active Substance: CLONAZEPAM
  4. VOLTAREN [Concomitant]
     Active Substance: DICLOFENAC SODIUM
  5. CLONIDINE. [Concomitant]
     Active Substance: CLONIDINE
  6. ALBUTEROL. [Concomitant]
     Active Substance: ALBUTEROL
  7. ADDERALL [Concomitant]
     Active Substance: AMPHETAMINE ASPARTATE\AMPHETAMINE SULFATE\DEXTROAMPHETAMINE SACCHARATE\DEXTROAMPHETAMINE SULFATE
  8. LAMICTAL [Concomitant]
     Active Substance: LAMOTRIGINE
  9. IBUPROFEN. [Concomitant]
     Active Substance: IBUPROFEN
  10. AMITRYPTYLINE [Suspect]
     Active Substance: AMITRIPTYLINE
  11. ADVAIR HFA [Concomitant]
     Active Substance: FLUTICASONE PROPIONATE\SALMETEROL XINAFOATE
  12. HCTZ [Concomitant]
     Active Substance: HYDROCHLOROTHIAZIDE

REACTIONS (3)
  - Cardiac arrest [None]
  - Respiratory failure [None]
  - Electrocardiogram QT prolonged [None]

NARRATIVE: CASE EVENT DATE: 20171221
